FAERS Safety Report 9290250 (Version 2)
Quarter: 2013Q2

REPORT INFORMATION
  Report Type: Spontaneous
  Country: US (occurrence: US)
  Receive Date: 20130515
  Receipt Date: 20130517
  Transmission Date: 20140414
  Serious: Yes (Other)
  Sender: FDA-Public Use
  Company Number: US-PFIZER INC-2013146859

PATIENT
  Age: 56 Year
  Sex: Female
  Weight: 52.15 kg

DRUGS (2)
  1. CELEBREX [Suspect]
     Indication: OSTEOARTHRITIS
     Dosage: 200 MG, 2X/DAY
     Dates: start: 20121213
  2. CELEBREX [Suspect]
     Dosage: 200 MG, 2X/DAY
     Dates: end: 2013

REACTIONS (2)
  - Conjunctival haemorrhage [Recovered/Resolved]
  - Pain [Unknown]
